FAERS Safety Report 25997486 (Version 3)
Quarter: 2025Q4

REPORT INFORMATION
  Report Type: Report from Study
  Country: CA (occurrence: CA)
  Receive Date: 20251104
  Receipt Date: 20251130
  Transmission Date: 20260118
  Serious: Yes (Hospitalization, Other)
  Sender: ABBVIE
  Company Number: CA-ABBVIE-6462090

PATIENT
  Age: 76 Year
  Sex: Female

DRUGS (23)
  1. VYALEV [Suspect]
     Active Substance: FOSCARBIDOPA\FOSLEVODOPA
     Indication: Product used for unknown indication
     Dosage: LAST ADMIN DATE: NOV 2025
     Route: 058
     Dates: start: 20250505
  2. VYALEV [Suspect]
     Active Substance: FOSCARBIDOPA\FOSLEVODOPA
     Dosage: FIRST ADMIN DATE: NOV 2025
     Route: 058
  3. PREGABALIN [Concomitant]
     Active Substance: PREGABALIN
     Indication: Product used for unknown indication
  4. DULOXETINE [Concomitant]
     Active Substance: DULOXETINE
     Indication: Product used for unknown indication
  5. GLICLAZIDE [Concomitant]
     Active Substance: GLICLAZIDE
     Indication: Product used for unknown indication
     Dosage: GPC
  6. NEUPRO [Concomitant]
     Active Substance: ROTIGOTINE
     Indication: Product used for unknown indication
  7. DICLOFENAC DIETHYLAMINE [Concomitant]
     Active Substance: DICLOFENAC DIETHYLAMINE
     Indication: Product used for unknown indication
     Dosage: EXTRA STRONG 2.32%
  8. CHOLECALCIFEROL [Concomitant]
     Active Substance: CHOLECALCIFEROL
     Indication: Product used for unknown indication
  9. Opus [Concomitant]
     Indication: Product used for unknown indication
     Dosage: CAL
  10. DEXLANSOPRAZOLE [Concomitant]
     Active Substance: DEXLANSOPRAZOLE
     Indication: Product used for unknown indication
  11. Opus b12 [Concomitant]
     Indication: Product used for unknown indication
  12. Bio atorvastatin [Concomitant]
     Indication: Product used for unknown indication
  13. ACETAMINOPHEN [Concomitant]
     Active Substance: ACETAMINOPHEN
     Indication: Product used for unknown indication
  14. ASPIRIN [Concomitant]
     Active Substance: ASPIRIN
     Indication: Product used for unknown indication
     Dosage: E.C
  15. METFORMIN\SITAGLIPTIN [Concomitant]
     Active Substance: METFORMIN\SITAGLIPTIN
     Indication: Product used for unknown indication
     Dosage: APO SITAGLIPTIN METFORMIN
  16. INDAPAMIDE\PERINDOPRIL [Concomitant]
     Active Substance: INDAPAMIDE\PERINDOPRIL
     Indication: Product used for unknown indication
  17. Apo levocarb cr [Concomitant]
     Indication: Product used for unknown indication
  18. CARBIDOPA\LEVODOPA [Concomitant]
     Active Substance: CARBIDOPA\LEVODOPA
     Indication: Product used for unknown indication
  19. Mylan Valacyclovir [Concomitant]
     Indication: Product used for unknown indication
  20. HYDROMORPHONE HYDROCHLORIDE [Concomitant]
     Active Substance: HYDROMORPHONE HYDROCHLORIDE
     Indication: Product used for unknown indication
  21. Nra pregabalin [Concomitant]
     Indication: Product used for unknown indication
  22. Mint quetiapine [Concomitant]
     Indication: Product used for unknown indication
  23. REFRESH CELLUVISC [Concomitant]
     Active Substance: CARBOXYMETHYLCELLULOSE SODIUM
     Indication: Product used for unknown indication
     Dosage: CELLUVISC 1% MINIM OPHT;

REACTIONS (22)
  - Loss of consciousness [Unknown]
  - Infusion site abscess [Unknown]
  - Hand fracture [Unknown]
  - Skin laceration [Unknown]
  - Fall [Unknown]
  - Infusion site infection [Not Recovered/Not Resolved]
  - Cataract [Unknown]
  - Wrong technique in product usage process [Unknown]
  - Infusion site bruising [Recovering/Resolving]
  - Infusion site nodule [Unknown]
  - Catheter site erythema [Recovering/Resolving]
  - Inflammation [Recovering/Resolving]
  - Limb injury [Recovering/Resolving]
  - Catheter site discolouration [Unknown]
  - Catheter site pain [Recovered/Resolved]
  - Device issue [Unknown]
  - Tremor [Unknown]
  - Device information output issue [Unknown]
  - Product contamination [Unknown]
  - Infusion site cellulitis [Unknown]
  - Infusion site cellulitis [Unknown]
  - Infusion site cellulitis [Unknown]

NARRATIVE: CASE EVENT DATE: 20250101
